FAERS Safety Report 5227247-9 (Version None)
Quarter: 2007Q1

REPORT INFORMATION
  Report Type: 
  Country: None (occurrence: None)
  Receive Date: 20070202
  Receipt Date: 20070124
  Transmission Date: 20070707
  Serious: Yes (Death)
  Sender: FDA-Public Use
  Company Number: JP-AVENTIS-200613845JP

PATIENT
  Age: 79 Year
  Sex: Male
  Weight: 50.2 kg

DRUGS (12)
  1. TAXOTERE [Suspect]
     Indication: NON-SMALL CELL LUNG CANCER RECURRENT
     Dosage: DOSE: 35 MG/M2 TWICE/3 WEEKS
     Route: 041
     Dates: start: 20060822, end: 20061031
  2. TERSIGAN [Suspect]
     Indication: CHRONIC OBSTRUCTIVE PULMONARY DISEASE
     Route: 055
     Dates: start: 20061031
  3. TS-1 [Concomitant]
     Indication: NON-SMALL CELL LUNG CANCER RECURRENT
     Route: 048
     Dates: start: 20051010, end: 20060727
  4. UFT [Concomitant]
     Route: 048
     Dates: start: 20030711, end: 20050623
  5. DECADRON [Concomitant]
     Dosage: DOSE: 4 MG TWICE/3 WEEKS
     Route: 041
     Dates: start: 20060822, end: 20061031
  6. ISOTONIC SODIUM CHLORIDE SOLUTION [Concomitant]
     Dosage: DOSE: 100 MG TWICE/3 WEEKS
     Route: 041
     Dates: start: 20060822, end: 20061031
  7. 5 % GLUCOSE [Concomitant]
     Dosage: DOSE: 250 ML TWICE/3 WEEKS
     Route: 041
     Dates: start: 20060822, end: 20061031
  8. BIOFERMIN [Concomitant]
     Indication: DIARRHOEA
     Route: 048
     Dates: start: 20061010
  9. HERBESSER [Concomitant]
     Indication: HYPERTENSION
     Route: 048
     Dates: start: 20030501, end: 20061117
  10. HARNAL [Concomitant]
     Route: 048
     Dates: start: 20030628
  11. ALDACTONE [Concomitant]
     Indication: HYPERTENSION
     Route: 048
     Dates: start: 20030501, end: 20061117
  12. SIGMART [Concomitant]
     Indication: HYPERTENSION
     Route: 048
     Dates: start: 20030501, end: 20061117

REACTIONS (1)
  - INTERSTITIAL LUNG DISEASE [None]
